FAERS Safety Report 17391776 (Version 2)
Quarter: 2020Q1

REPORT INFORMATION
  Report Type: Spontaneous
  Country: US (occurrence: US)
  Receive Date: 20200207
  Receipt Date: 20200219
  Transmission Date: 20200409
  Serious: Yes (Other)
  Sender: FDA-Public Use
  Company Number: US-NOVOPROD-710376

PATIENT
  Age: 40 Year
  Sex: Female
  Weight: 102.04 kg

DRUGS (4)
  1. VICTOZA [Suspect]
     Active Substance: LIRAGLUTIDE
     Dosage: 1.2 MG, QD
     Route: 058
  2. VICTOZA [Suspect]
     Active Substance: LIRAGLUTIDE
     Dosage: 1.8 MG, QD
     Route: 058
     Dates: end: 20191201
  3. VICTOZA [Suspect]
     Active Substance: LIRAGLUTIDE
     Dosage: 0.6 MG, QD
     Route: 058
  4. VICTOZA [Suspect]
     Active Substance: LIRAGLUTIDE
     Indication: TYPE 2 DIABETES MELLITUS
     Dosage: LESS THAN 0.6MG QD
     Route: 058
     Dates: start: 20180101

REACTIONS (8)
  - Nausea [Unknown]
  - Biliary dyskinesia [Not Recovered/Not Resolved]
  - Vomiting [Unknown]
  - Dehydration [Unknown]
  - Gastrooesophageal reflux disease [Unknown]
  - Cholelithiasis [Not Recovered/Not Resolved]
  - Product dose omission [Recovered/Resolved]
  - Off label use [Recovered/Resolved]

NARRATIVE: CASE EVENT DATE: 2018
